FAERS Safety Report 11106380 (Version 1)
Quarter: 2015Q2

REPORT INFORMATION
  Report Type: Spontaneous
  Country: US (occurrence: US)
  Receive Date: 20150512
  Receipt Date: 20150512
  Transmission Date: 20150821
  Serious: Yes (Hospitalization)
  Sender: FDA-Public Use
  Company Number: US-BAUSCH-BL-2015-012390

PATIENT
  Sex: Male
  Weight: 78.09 kg

DRUGS (2)
  1. FLUCYTOSINE. [Suspect]
     Active Substance: FLUCYTOSINE
     Indication: PNEUMONIA CRYPTOCOCCAL
     Route: 065
     Dates: start: 2015, end: 2015
  2. AMBISOME [Suspect]
     Active Substance: AMPHOTERICIN B
     Indication: PNEUMONIA CRYPTOCOCCAL
     Route: 065
     Dates: start: 201404, end: 20150120

REACTIONS (11)
  - Pneumonia cryptococcal [Recovering/Resolving]
  - Malnutrition [Recovering/Resolving]
  - Vomiting [Unknown]
  - Meningitis aseptic [Recovering/Resolving]
  - Hypertension [Recovered/Resolved]
  - Fatigue [Not Recovered/Not Resolved]
  - Brain abscess [Recovering/Resolving]
  - CD4 lymphocytes decreased [Recovering/Resolving]
  - Hypogammaglobulinaemia [Unknown]
  - Acute kidney injury [Recovering/Resolving]
  - Headache [Not Recovered/Not Resolved]
